FAERS Safety Report 22212482 (Version 2)
Quarter: 2023Q2

REPORT INFORMATION
  Report Type: Report from Study
  Country: US (occurrence: US)
  Receive Date: 20230414
  Receipt Date: 20230622
  Transmission Date: 20230722
  Serious: Yes (Other)
  Sender: FDA-Public Use
  Company Number: US-XERIS PHARMACEUTICALS-2022XER00305

PATIENT
  Age: 68 Year
  Sex: Female

DRUGS (8)
  1. RECORLEV [Suspect]
     Active Substance: LEVOKETOCONAZOLE
     Indication: Cushing^s syndrome
     Dosage: 1 TABLET (150 MG), 2X/DAY
     Route: 048
     Dates: start: 20220523, end: 2022
  2. RECORLEV [Suspect]
     Active Substance: LEVOKETOCONAZOLE
     Dosage: 300 MG, 2X/DAY
     Route: 048
     Dates: start: 2022, end: 2022
  3. RECORLEV [Suspect]
     Active Substance: LEVOKETOCONAZOLE
     Dosage: 150 MG, 2X/DAY
     Route: 048
     Dates: start: 2022
  4. RECORLEV [Suspect]
     Active Substance: LEVOKETOCONAZOLE
     Dosage: 300 MG, 1X/DAY IN THE MORNING
     Route: 048
  5. RECORLEV [Suspect]
     Active Substance: LEVOKETOCONAZOLE
     Dosage: 150 MG, 1X/DAY AT BEDTIME
     Route: 048
  6. RECORLEV [Suspect]
     Active Substance: LEVOKETOCONAZOLE
     Dosage: 300 MG, 1X/DAY IN THE MORNING
     Route: 048
  7. RECORLEV [Suspect]
     Active Substance: LEVOKETOCONAZOLE
     Dosage: 150 MG, 1X/DAY AT BEDTIME
     Route: 048
  8. IRON [Concomitant]
     Active Substance: IRON

REACTIONS (14)
  - Nausea [Not Recovered/Not Resolved]
  - Skin laceration [Recovering/Resolving]
  - Tendon injury [Recovering/Resolving]
  - Arterial injury [Recovering/Resolving]
  - Nerve injury [Recovering/Resolving]
  - Patella fracture [Unknown]
  - Fall [Recovering/Resolving]
  - Hypotension [Recovering/Resolving]
  - Weight increased [Unknown]
  - Blood glucose abnormal [Not Recovered/Not Resolved]
  - Cortisol increased [Not Recovered/Not Resolved]
  - Visual impairment [Not Recovered/Not Resolved]
  - Diabetes mellitus [Unknown]
  - Product dose omission issue [Unknown]

NARRATIVE: CASE EVENT DATE: 20220801
